FAERS Safety Report 26056116 (Version 2)
Quarter: 2025Q4

REPORT INFORMATION
  Report Type: Spontaneous
  Country: US (occurrence: US)
  Receive Date: 20251118
  Receipt Date: 20251205
  Transmission Date: 20260117
  Serious: No
  Sender: BRISTOL-MYERS SQUIBB COMPANY
  Company Number: US-BRISTOL-MYERS SQUIBB COMPANY-2025-155670

PATIENT
  Age: 70 Year
  Sex: Female
  Weight: 61.69 kg

DRUGS (1)
  1. POMALYST [Suspect]
     Active Substance: POMALIDOMIDE
     Indication: Plasma cell myeloma
     Route: 048

REACTIONS (4)
  - Blood test abnormal [Unknown]
  - Peripheral swelling [Recovering/Resolving]
  - Skin discolouration [Recovering/Resolving]
  - Pain in extremity [Recovering/Resolving]
